FAERS Safety Report 10028063 (Version 2)
Quarter: 2014Q1

REPORT INFORMATION
  Report Type: Spontaneous
  Country: US (occurrence: US)
  Receive Date: 20140321
  Receipt Date: 20140328
  Transmission Date: 20141002
  Serious: Yes (Death, Hospitalization, Other)
  Sender: FDA-Public Use
  Company Number: US-BAXTER-2014BAX013935

PATIENT
  Sex: Male

DRUGS (2)
  1. DIANEAL LOW CALCIUM [Suspect]
     Indication: PERITONEAL DIALYSIS
     Route: 033
     Dates: end: 20140317
  2. DIANEAL LOW CALCIUM [Suspect]
     Indication: PERITONEAL DIALYSIS
     Route: 033
     Dates: end: 20140317

REACTIONS (12)
  - Septic shock [Fatal]
  - Cardiac disorder [Fatal]
  - Blister [Not Recovered/Not Resolved]
  - Gangrene [Unknown]
  - Urinary tract infection [Unknown]
  - Limb injury [Unknown]
  - Shock [Unknown]
  - Encephalopathy [Unknown]
  - Supraventricular tachycardia [Unknown]
  - Condition aggravated [Unknown]
  - Thrombocytopenia [Unknown]
  - Fluid retention [Unknown]
